FAERS Safety Report 7821248-X (Version None)
Quarter: 2011Q4

REPORT INFORMATION
  Report Type: 
  Country: None (occurrence: None)
  Receive Date: 20111018
  Receipt Date: 20111013
  Transmission Date: 20120403
  Serious: Yes (Death)
  Sender: FDA-Public Use
  Company Number: CA-PFIZER INC-2011245983

PATIENT
  Age: 89 Year
  Sex: Female

DRUGS (6)
  1. VENLAFAXINE HCL [Suspect]
     Dosage: 112.5 MG, 1X/DAY
     Dates: start: 20111006, end: 20111008
  2. ACTONEL [Concomitant]
     Indication: OSTEOPENIA
     Dosage: UNK
     Route: 048
  3. AMOXICILLIN [Concomitant]
     Indication: URINARY TRACT INFECTION
     Dosage: UNK
     Route: 048
     Dates: start: 20111006
  4. VENLAFAXINE HCL [Suspect]
     Indication: DEPRESSION
     Dosage: 37.5 MG, 1X/DAY
     Dates: start: 20110930, end: 20111002
  5. VENLAFAXINE HCL [Suspect]
     Dosage: 150 MG, 1X/DAY
     Dates: start: 20111009
  6. VENLAFAXINE HCL [Suspect]
     Dosage: 75 MG, 1X/DAY
     Dates: start: 20111003, end: 20111005

REACTIONS (3)
  - COMPLETED SUICIDE [None]
  - OVERDOSE [None]
  - DISORIENTATION [None]
